FAERS Safety Report 5838414-5 (Version None)
Quarter: 2008Q3

REPORT INFORMATION
  Report Type: 
  Country: None (occurrence: None)
  Receive Date: 20080808
  Receipt Date: 20080731
  Transmission Date: 20090109
  Serious: Yes (Hospitalization, Other)
  Sender: FDA-Public Use
  Company Number: US-ABBOTT-08P-163-0468093-00

PATIENT
  Sex: Female
  Weight: 62.652 kg

DRUGS (8)
  1. SYNTHROID [Suspect]
     Indication: HYPOTHYROIDISM
     Dosage: 1 EVERY 2 DAYS, ALTERNATING DOSES
     Route: 048
  2. SYNTHROID [Suspect]
     Dosage: 1 EVERY 2 DAYS, ALTERNATING DOSES
     Route: 048
  3. SYNTHROID [Suspect]
  4. WARFARIN SODIUM [Suspect]
     Indication: DRUG USE FOR UNKNOWN INDICATION
     Dosage: FOR 5 DAYS
     Route: 048
     Dates: start: 20080601
  5. CLONAZEPAM [Concomitant]
     Indication: DRUG USE FOR UNKNOWN INDICATION
     Route: 048
  6. FLUOXETINE [Concomitant]
     Indication: DRUG USE FOR UNKNOWN INDICATION
     Route: 048
  7. PRAVASTATIN SODIUM [Concomitant]
     Indication: BLOOD CHOLESTEROL
     Route: 048
  8. CARVEDILOL [Concomitant]
     Indication: DRUG USE FOR UNKNOWN INDICATION
     Route: 048
     Dates: start: 20080601

REACTIONS (8)
  - ASTHENIA [None]
  - BLOOD URINE PRESENT [None]
  - CARDIAC FAILURE CONGESTIVE [None]
  - CYSTITIS [None]
  - IRRITABILITY [None]
  - OVERDOSE [None]
  - SOMNOLENCE [None]
  - VOMITING [None]
